FAERS Safety Report 4526137-4 (Version None)
Quarter: 2004Q4

REPORT INFORMATION
  Report Type: 
  Country: None (occurrence: None)
  Receive Date: 20041213
  Receipt Date: 20041213
  Transmission Date: 20050328
  Serious: Yes (Other)
  Sender: FDA-Public Use
  Company Number: None

PATIENT
  Age: 63 Year
  Sex: Female
  Weight: 80.7403 kg

DRUGS (6)
  1. CORICIDIN D SRT [Suspect]
     Indication: HYPERSENSITIVITY
     Dosage: 2 TABS ORAL
     Route: 048
     Dates: start: 19620101, end: 19970101
  2. CORICIDIN D SRT [Suspect]
     Indication: NASOPHARYNGITIS
     Dosage: 2 TABS ORAL
     Route: 048
     Dates: start: 19620101, end: 19970101
  3. SPIRONOLACTONE [Concomitant]
  4. PRILOSEC [Concomitant]
  5. PREMARIN [Concomitant]
  6. QUININE [Concomitant]

REACTIONS (2)
  - DIZZINESS [None]
  - HAEMORRHAGIC STROKE [None]
